FAERS Safety Report 16820687 (Version 1)
Quarter: 2019Q3

REPORT INFORMATION
  Report Type: Spontaneous
  Country: US (occurrence: US)
  Receive Date: 20190918
  Receipt Date: 20190918
  Transmission Date: 20191005
  Serious: No
  Sender: FDA-Public Use
  Company Number: US-ASTRAZENECA-2019SF20092

PATIENT
  Sex: Female

DRUGS (1)
  1. BYDUREON [Suspect]
     Active Substance: EXENATIDE
     Route: 065

REACTIONS (6)
  - Pruritus [Unknown]
  - Wrong technique in device usage process [Unknown]
  - Skin mass [Unknown]
  - Contusion [Unknown]
  - Skin disorder [Unknown]
  - Device issue [Unknown]
